FAERS Safety Report 5705863-5 (Version None)
Quarter: 2008Q2

REPORT INFORMATION
  Report Type: 
  Country: None (occurrence: None)
  Receive Date: 20080415
  Receipt Date: 20080225
  Transmission Date: 20081010
  Serious: Yes (Other)
  Sender: FDA-Public Use
  Company Number: US-MERCK-0802USA05522

PATIENT
  Age: 66 Year
  Sex: Female

DRUGS (2)
  1. FOSAMAX PLUS D [Suspect]
     Indication: OSTEOPOROSIS
     Route: 048
     Dates: start: 20060101
  2. [THERAPY UNSPECIFIED] [Concomitant]
     Route: 065

REACTIONS (2)
  - INTESTINAL GANGRENE [None]
  - NAUSEA [None]
